FAERS Safety Report 13443739 (Version 3)
Quarter: 2017Q2

REPORT INFORMATION
  Report Type: Spontaneous
  Country: US (occurrence: US)
  Receive Date: 20170414
  Receipt Date: 20170427
  Transmission Date: 20170830
  Serious: Yes (Other)
  Sender: FDA-Public Use
  Company Number: US-ASTELLAS-2017US013958

PATIENT
  Sex: Male

DRUGS (1)
  1. XTANDI [Suspect]
     Active Substance: ENZALUTAMIDE
     Indication: PROSTATE CANCER
     Route: 048
     Dates: start: 20170322

REACTIONS (12)
  - Gait disturbance [Unknown]
  - Arthralgia [Unknown]
  - Bone cancer [Unknown]
  - Pain in extremity [Unknown]
  - Blood pressure increased [Unknown]
  - Bone pain [Unknown]
  - Back pain [Unknown]
  - Hot flush [Unknown]
  - Fatigue [Unknown]
  - Peripheral swelling [Unknown]
  - Asthenia [Unknown]
  - Weight increased [Unknown]
